FAERS Safety Report 23436155 (Version 2)
Quarter: 2024Q2

REPORT INFORMATION
  Report Type: Spontaneous
  Country: DE (occurrence: DE)
  Receive Date: 20240124
  Receipt Date: 20240506
  Transmission Date: 20240716
  Serious: Yes (Other)
  Sender: FDA-Public Use
  Company Number: DE-002147023-NVSC2024DE005189

PATIENT
  Sex: Female

DRUGS (1)
  1. XOLAIR [Suspect]
     Active Substance: OMALIZUMAB
     Indication: Chronic spontaneous urticaria
     Dosage: 300 MG, Q4W (2X150MG)
     Route: 065
     Dates: start: 2023

REACTIONS (4)
  - Urticaria [Not Recovered/Not Resolved]
  - Angioedema [Recovered/Resolved]
  - Lip oedema [Recovering/Resolving]
  - Device ineffective [Unknown]
